FAERS Safety Report 4902548-X (Version None)
Quarter: 2006Q1

REPORT INFORMATION
  Report Type: 
  Country: None (occurrence: None)
  Receive Date: 20060202
  Receipt Date: 20060120
  Transmission Date: 20060701
  Serious: Yes (Life-Threatening)
  Sender: FDA-Public Use
  Company Number: 2006-DE-00338GD

PATIENT
  Age: 37 Year
  Sex: Female

DRUGS (4)
  1. ACETAMINOPHEN [Suspect]
     Dosage: 30 G
  2. ACETYLCYSTEINE [Suspect]
     Indication: DRUG TOXICITY
     Dosage: IV
     Route: 042
  3. METHADONE HCL [Suspect]
     Dosage: 60 MG
  4. CARBAMAZEPINE [Suspect]

REACTIONS (5)
  - BLOOD PRESSURE DIASTOLIC INCREASED [None]
  - HEPATIC FAILURE [None]
  - LACERATION [None]
  - LIVER TRANSPLANT [None]
  - MULTIPLE DRUG OVERDOSE [None]
